FAERS Safety Report 23101009 (Version 1)
Quarter: 2023Q4

REPORT INFORMATION
  Report Type: Spontaneous
  Country: US (occurrence: None)
  Receive Date: 20231021
  Receipt Date: 20231021
  Transmission Date: 20240110
  Serious: Yes (Hospitalization)
  Sender: FDA-Public Use
  Company Number: None

PATIENT
  Age: 67 Year
  Sex: Male

DRUGS (1)
  1. MIRTAZAPINE [Suspect]
     Active Substance: MIRTAZAPINE
     Dates: start: 20230228

REACTIONS (5)
  - Somnolence [None]
  - Acute respiratory distress syndrome [None]
  - Cardiac failure congestive [None]
  - Hypothermia [None]
  - Hypoglycaemia [None]

NARRATIVE: CASE EVENT DATE: 20230228
